FAERS Safety Report 8891677 (Version 1)
Quarter: 2012Q4

REPORT INFORMATION
  Report Type: Report from Study
  Country: NL (occurrence: NL)
  Receive Date: 20121107
  Receipt Date: 20121107
  Transmission Date: 20130627
  Serious: Yes (Hospitalization)
  Sender: FDA-Public Use
  Company Number: NL-B.I. PHARMACEUTICALS,INC./RIDGEFIELD-2012-EU-05383EU

PATIENT
  Age: 80 Year
  Sex: Male
  Weight: 95 kg

DRUGS (7)
  1. DABIGATRAN [Suspect]
     Indication: ATRIAL FIBRILLATION
     Route: 048
     Dates: start: 20060612
  2. DABIGATRAN [Suspect]
     Indication: CEREBROVASCULAR ACCIDENT PROPHYLAXIS
  3. DUTASTERIDE [Concomitant]
     Indication: PROSTATIC DISORDER
     Dosage: 0.5 mg
     Route: 048
     Dates: start: 20090612
  4. TAMSULOSINE [Concomitant]
     Indication: PROSTATIC DISORDER
     Dosage: 0.4 mg
     Route: 048
     Dates: start: 2009
  5. QUINAPRIL [Concomitant]
     Indication: HYPERTENSION
     Dosage: 40 mg
     Route: 048
     Dates: start: 2003
  6. FUROSEMIDE [Concomitant]
     Indication: CARDIAC FAILURE
     Dosage: 60 mg
     Route: 048
     Dates: start: 2000
  7. METOPROLOL [Concomitant]
     Indication: CARDIAC FAILURE
     Dosage: 510 mg
     Route: 048
     Dates: start: 2004

REACTIONS (3)
  - Faeces discoloured [Recovered/Resolved]
  - Fatigue [Recovered/Resolved]
  - Dyspnoea [Recovered/Resolved]
